FAERS Safety Report 25011404 (Version 1)
Quarter: 2025Q1

REPORT INFORMATION
  Report Type: Spontaneous
  Country: RU (occurrence: RU)
  Receive Date: 20250226
  Receipt Date: 20250226
  Transmission Date: 20250408
  Serious: No
  Sender: JOHNSON AND JOHNSON
  Company Number: RU-JNJFOC-20250238328

PATIENT
  Age: 69 Year

DRUGS (2)
  1. REMICADE [Suspect]
     Active Substance: INFLIXIMAB
     Indication: Immune-mediated myositis
     Route: 041
  2. PREDNISOLONE [Suspect]
     Active Substance: PREDNISOLONE
     Indication: Immune-mediated myositis
     Route: 065

REACTIONS (3)
  - Pain [Unknown]
  - Neoplasm [Unknown]
  - Off label use [Unknown]
